FAERS Safety Report 9127248 (Version 1)
Quarter: 2013Q1

REPORT INFORMATION
  Report Type: Spontaneous
  Country: US (occurrence: US)
  Receive Date: 20130228
  Receipt Date: 20130228
  Transmission Date: 20140127
  Serious: Yes (Other)
  Sender: FDA-Public Use
  Company Number: US-GLAXOSMITHKLINE-A0963764A

PATIENT
  Age: 36 Year
  Sex: Female
  Weight: 68.2 kg

DRUGS (2)
  1. LAMICTAL [Suspect]
     Indication: BIPOLAR DISORDER
     Dosage: 50MG PER DAY
     Route: 048
     Dates: start: 20090127, end: 20090312
  2. PROZAC [Concomitant]

REACTIONS (2)
  - Lymphadenopathy [Recovered/Resolved]
  - Leukopenia [Unknown]
